FAERS Safety Report 6945412-7 (Version None)
Quarter: 2010Q3

REPORT INFORMATION
  Report Type: 
  Country: None (occurrence: None)
  Receive Date: 20100827
  Receipt Date: 20100824
  Transmission Date: 20110219
  Serious: Yes (Death)
  Sender: FDA-Public Use
  Company Number: PHHY2010BR24315

PATIENT
  Sex: Male

DRUGS (1)
  1. EXELON [Suspect]
     Dosage: 9MG/5CM2
     Route: 062
     Dates: start: 20100201

REACTIONS (2)
  - MULTI-ORGAN FAILURE [None]
  - SEPTIC SHOCK [None]
